FAERS Safety Report 9686550 (Version 1)
Quarter: 2013Q4

REPORT INFORMATION
  Report Type: Spontaneous
  Country: HR (occurrence: HR)
  Receive Date: 20131113
  Receipt Date: 20131113
  Transmission Date: 20140711
  Serious: Yes (Other)
  Sender: FDA-Public Use
  Company Number: HR-TEVA-442344ISR

PATIENT
  Age: 68 Year
  Sex: Female

DRUGS (5)
  1. STATEX [Suspect]
     Indication: ACUTE MYOCARDIAL INFARCTION
     Dosage: 40 MILLIGRAM DAILY;
     Route: 048
     Dates: start: 20130909, end: 20130924
  2. TRIMETAZIDIN PHARMAS 35 MG [Suspect]
     Indication: ACUTE MYOCARDIAL INFARCTION
     Dosage: 35 MILLIGRAM DAILY; MODIFIED RELEASE TABLETS
     Route: 048
     Dates: start: 20130909, end: 20130924
  3. SOLU MEDROL [Suspect]
     Indication: BACK PAIN
     Dosage: 40 MILLIGRAM DAILY; VIALS, DRY
     Route: 030
     Dates: start: 20130909, end: 20130913
  4. NAKLOFEN [Suspect]
     Indication: BACK PAIN
     Dosage: 75 MILLIGRAM DAILY;
     Route: 030
     Dates: start: 20130909, end: 20130913
  5. PANTOPRAZOL GENERA 40 MG [Concomitant]
     Dosage: COATED TABLETS, ENTERIC
     Route: 048

REACTIONS (5)
  - Odynophagia [Recovered/Resolved]
  - Pharyngeal ulceration [Recovered/Resolved]
  - Pharyngeal haemorrhage [Recovered/Resolved]
  - Confusional state [Recovered/Resolved]
  - Disorientation [Recovered/Resolved]
